FAERS Safety Report 22843270 (Version 7)
Quarter: 2023Q4

REPORT INFORMATION
  Report Type: Spontaneous
  Country: US (occurrence: US)
  Receive Date: 20230821
  Receipt Date: 20231031
  Transmission Date: 20240110
  Serious: No
  Sender: FDA-Public Use
  Company Number: US-PFIZER INC-PV202300139379

PATIENT
  Age: 15 Year
  Sex: Male

DRUGS (1)
  1. GENOTROPIN [Suspect]
     Active Substance: SOMATROPIN
     Dosage: 1.8 MG, 7 DAYS/WEEK
     Dates: start: 202308

REACTIONS (5)
  - Device difficult to use [Unknown]
  - Device mechanical issue [Unknown]
  - Device leakage [Unknown]
  - Injection site pain [Unknown]
  - Injection site discharge [Unknown]

NARRATIVE: CASE EVENT DATE: 20230801
